FAERS Safety Report 10016802 (Version 4)
Quarter: 2014Q2

REPORT INFORMATION
  Report Type: Spontaneous
  Country: CA (occurrence: CA)
  Receive Date: 20140318
  Receipt Date: 20140501
  Transmission Date: 20141212
  Serious: Yes (Other)
  Sender: FDA-Public Use
  Company Number: CHPA2014CA003610

PATIENT
  Sex: Female

DRUGS (2)
  1. NEOCITRAN ULTRA STRENGTH TOTAL FLU [Suspect]
     Indication: COUGH
     Dosage: UNK
  2. NEOCITRAN ULTRA STRENGTH TOTAL FLU [Suspect]
     Dosage: 1 DF, UNK
     Dates: start: 20140212

REACTIONS (2)
  - Nasopharyngitis [Recovering/Resolving]
  - Drug ineffective [Unknown]
